FAERS Safety Report 6232037-4 (Version None)
Quarter: 2009Q2

REPORT INFORMATION
  Report Type: 
  Country: None (occurrence: None)
  Receive Date: 20090612
  Receipt Date: 20090609
  Transmission Date: 20091009
  Serious: Yes (Other)
  Sender: FDA-Public Use
  Company Number: 2009SP012439

PATIENT
  Age: 61 Year
  Sex: Male

DRUGS (7)
  1. PEG-INTRON [Suspect]
     Indication: HEPATITIS C
     Dosage: 100 MCG;QW; 50 MCG; QW; SC
     Route: 058
     Dates: start: 20090120, end: 20090224
  2. PEG-INTRON [Suspect]
     Indication: HEPATITIS C
     Dosage: 100 MCG;QW; 50 MCG; QW; SC
     Route: 058
     Dates: start: 20090225
  3. RIBAVIRIN [Suspect]
     Indication: HEPATITIS C
     Dosage: 800 MG;QD; 600 MG; QD; 200 MG; QD; 400 MG; QD; PO
     Route: 048
     Dates: start: 20090120, end: 20090324
  4. RIBAVIRIN [Suspect]
     Indication: HEPATITIS C
     Dosage: 800 MG;QD; 600 MG; QD; 200 MG; QD; 400 MG; QD; PO
     Route: 048
     Dates: start: 20090325, end: 20090407
  5. RIBAVIRIN [Suspect]
     Indication: HEPATITIS C
     Dosage: 800 MG;QD; 600 MG; QD; 200 MG; QD; 400 MG; QD; PO
     Route: 048
     Dates: start: 20090408, end: 20090429
  6. RIBAVIRIN [Suspect]
     Indication: HEPATITIS C
     Dosage: 800 MG;QD; 600 MG; QD; 200 MG; QD; 400 MG; QD; PO
     Route: 048
     Dates: start: 20090430
  7. MP-424 (INVESTIGATIONAL DRUG) [Suspect]
     Indication: HEPATITIS C
     Dosage: 2250 MG;QD;PO
     Route: 048
     Dates: start: 20090120, end: 20090408

REACTIONS (7)
  - ANOREXIA [None]
  - EPIGASTRIC DISCOMFORT [None]
  - GASTRIC CANCER [None]
  - HAEMOGLOBIN DECREASED [None]
  - MALAISE [None]
  - NAUSEA [None]
  - PLATELET COUNT DECREASED [None]
